FAERS Safety Report 25770400 (Version 1)
Quarter: 2025Q3

REPORT INFORMATION
  Report Type: Spontaneous
  Country: EU (occurrence: EU)
  Receive Date: 20250908
  Receipt Date: 20250908
  Transmission Date: 20251021
  Serious: Yes (Hospitalization, Other)
  Sender: AMGEN
  Company Number: EU-AMGEN-POLSP2025175762

PATIENT
  Age: 40 Year
  Weight: 123 kg

DRUGS (5)
  1. FILGRASTIM [Suspect]
     Active Substance: FILGRASTIM
     Indication: Agranulocytosis
     Route: 065
  2. FILGRASTIM [Suspect]
     Active Substance: FILGRASTIM
     Indication: Product used for unknown indication
  3. GEMCITABINE [Concomitant]
     Active Substance: GEMCITABINE
     Indication: Bile duct cancer
  4. ECULIZUMAB [Concomitant]
     Active Substance: ECULIZUMAB
  5. CASPOFUNGIN [Concomitant]
     Active Substance: CASPOFUNGIN

REACTIONS (3)
  - Cerebral haemorrhage [Unknown]
  - Hypertensive encephalopathy [Unknown]
  - Ascites [Unknown]
